FAERS Safety Report 6954322-0 (Version None)
Quarter: 2010Q3

REPORT INFORMATION
  Report Type: 
  Country: None (occurrence: None)
  Receive Date: 20100829
  Receipt Date: 20100712
  Transmission Date: 20110219
  Serious: No
  Sender: FDA-Public Use
  Company Number: US-ABBOTT-10P-163-0656936-00

PATIENT
  Sex: Female
  Weight: 74.91 kg

DRUGS (11)
  1. NIASPAN [Suspect]
     Indication: BLOOD CHOLESTEROL INCREASED
     Dates: start: 20100701
  2. NIASPAN [Suspect]
     Dates: start: 20100401, end: 20100501
  3. BENICAR HCT [Concomitant]
     Indication: BLOOD PRESSURE
  4. LEXAPRO [Concomitant]
     Indication: PRODUCT USED FOR UNKNOWN INDICATION
  5. LYRICA [Concomitant]
     Indication: PAIN IN EXTREMITY
  6. ZETIA [Concomitant]
     Indication: BLOOD CHOLESTEROL
  7. TOPROL-XL [Concomitant]
     Indication: BLOOD PRESSURE
  8. SYNTHROID [Concomitant]
     Indication: HYPOTHYROIDISM
  9. NORVASC [Concomitant]
     Indication: BLOOD PRESSURE
  10. AMBIEN CR [Concomitant]
     Indication: INSOMNIA
  11. PRILOSEC [Concomitant]
     Indication: PRODUCT USED FOR UNKNOWN INDICATION

REACTIONS (1)
  - NAUSEA [None]
